FAERS Safety Report 18697228 (Version 3)
Quarter: 2021Q2

REPORT INFORMATION
  Report Type: Spontaneous
  Country: US (occurrence: US)
  Receive Date: 20210104
  Receipt Date: 20210427
  Transmission Date: 20210717
  Serious: No
  Sender: FDA-Public Use
  Company Number: NVSC2020US346956

PATIENT
  Age: 19 Year
  Sex: Female
  Weight: 180 kg

DRUGS (1)
  1. ILARIS [Suspect]
     Active Substance: CANAKINUMAB
     Indication: FAMILIAL MEDITERRANEAN FEVER
     Dosage: 150 MG, Q4W
     Route: 058

REACTIONS (8)
  - SARS-CoV-2 test positive [Recovered/Resolved]
  - Malaise [Not Recovered/Not Resolved]
  - Anosmia [Not Recovered/Not Resolved]
  - Ageusia [Not Recovered/Not Resolved]
  - Oropharyngeal pain [Not Recovered/Not Resolved]
  - Pyrexia [Unknown]
  - Pain [Not Recovered/Not Resolved]
  - Tonsillar exudate [Unknown]

NARRATIVE: CASE EVENT DATE: 20201229
